FAERS Safety Report 6541756-1 (Version None)
Quarter: 2010Q1

REPORT INFORMATION
  Report Type: 
  Country: None (occurrence: None)
  Receive Date: 20100119
  Receipt Date: 20100114
  Transmission Date: 20100710
  Serious: Yes (Death)
  Sender: FDA-Public Use
  Company Number: LB-SANOFI-AVENTIS-2010SA002187

PATIENT
  Age: 85 Year
  Sex: Female
  Weight: 75 kg

DRUGS (4)
  1. ENOXAPARIN SODIUM [Suspect]
     Indication: PROPHYLAXIS
     Route: 058
     Dates: start: 20100101, end: 20100109
  2. GLUCOPHAGE [Concomitant]
  3. AMARYL [Concomitant]
  4. SINEMET [Concomitant]
     Indication: PARKINSON'S DISEASE

REACTIONS (1)
  - PULMONARY EMBOLISM [None]
